FAERS Safety Report 5845239-3 (Version None)
Quarter: 2008Q3

REPORT INFORMATION
  Report Type: 
  Country: None (occurrence: None)
  Receive Date: 20080814
  Receipt Date: 20080808
  Transmission Date: 20090109
  Serious: Yes (Hospitalization)
  Sender: FDA-Public Use
  Company Number: B0531645A

PATIENT
  Age: 82 Year
  Sex: Female
  Weight: 72 kg

DRUGS (2)
  1. FONDAPARINUX [Suspect]
     Dosage: 1.5MG PER DAY
     Route: 058
     Dates: start: 20080617, end: 20080623
  2. ASPIRIN [Concomitant]
     Indication: DRUG USE FOR UNKNOWN INDICATION
     Dosage: 160MG PER DAY
     Dates: start: 20080401

REACTIONS (5)
  - BETA HAEMOLYTIC STREPTOCOCCAL INFECTION [None]
  - BLOODY DISCHARGE [None]
  - HAEMATOMA [None]
  - OPPORTUNISTIC INFECTION [None]
  - WOUND SECRETION [None]
